FAERS Safety Report 5024395-3 (Version None)
Quarter: 2006Q2

REPORT INFORMATION
  Report Type: 
  Country: None (occurrence: None)
  Receive Date: 20060426
  Receipt Date: 20060302
  Transmission Date: 20061013
  Serious: Yes (Other)
  Sender: FDA-Public Use
  Company Number: 2006031031

PATIENT
  Age: 56 Year
  Sex: Male
  Weight: 81.6475 kg

DRUGS (13)
  1. LYRICA [Suspect]
     Indication: NEUROPATHY
     Dosage: 150 MG ( 75 MG, 2 IN 1 D)
     Dates: start: 20060201
  2. LYRICA [Suspect]
     Indication: PAIN
     Dosage: 150 MG ( 75 MG, 2 IN 1 D)
     Dates: start: 20060201
  3. LYRICA [Suspect]
     Indication: SPINAL CORD DISORDER
     Dosage: 150 MG ( 75 MG, 2 IN 1 D)
     Dates: start: 20060201
  4. MORPHINE [Concomitant]
  5. PERCOCET [Concomitant]
  6. ACTIQ [Concomitant]
  7. SOMA 9CARISOPRODOL) [Concomitant]
  8. TEMAZEPAM [Concomitant]
  9. GABATRIL (TIAGABINE HYDROCHLORIDE) [Concomitant]
  10. WELLBUTRIN SR [Concomitant]
  11. KLONOPIN [Concomitant]
  12. SERZONE [Concomitant]
  13. DITROPAN XL [Concomitant]

REACTIONS (1)
  - VISION BLURRED [None]
